FAERS Safety Report 16711854 (Version 2)
Quarter: 2019Q3

REPORT INFORMATION
  Report Type: Report from Study
  Country: TW (occurrence: TW)
  Receive Date: 20190816
  Receipt Date: 20190926
  Transmission Date: 20191004
  Serious: Yes (Other)
  Sender: FDA-Public Use
  Company Number: PHHY2019TW190104

PATIENT
  Age: 64 Year
  Sex: Male

DRUGS (134)
  1. GLUCOSE [Concomitant]
     Active Substance: DEXTROSE
     Dosage: 20 ML, UNK
     Route: 042
     Dates: start: 20180126, end: 20180126
  2. ACETAMINOPHEN. [Concomitant]
     Active Substance: ACETAMINOPHEN
     Indication: GOUT
     Dosage: 500 MG, UNK
     Route: 048
     Dates: start: 20171117, end: 20171124
  3. BENZBROMARONE [Concomitant]
     Active Substance: BENZBROMARONE
     Dosage: 100 MG, UNK
     Route: 048
     Dates: start: 20180204, end: 20180205
  4. GLUCOPHAGE [Concomitant]
     Active Substance: METFORMIN HYDROCHLORIDE
     Dosage: 500 MG, UNK
     Route: 048
     Dates: start: 20180128, end: 20180204
  5. KENTAMIN [Concomitant]
     Indication: GOUT
     Dosage: 1 OT, UNK
     Route: 048
     Dates: start: 20171119, end: 20171120
  6. MAG OXIDE [Concomitant]
     Active Substance: MAGNESIUM OXIDE
     Dosage: 250 MG, UNK
     Route: 048
     Dates: start: 20180117, end: 20180126
  7. NOVOMIX [Concomitant]
     Active Substance: INSULIN ASPART
     Dosage: 14 U, UNK
     Route: 058
     Dates: start: 20180115, end: 20180118
  8. PANTOPRAZOLE [Concomitant]
     Active Substance: PANTOPRAZOLE
     Dosage: 80 MG, UNK
     Route: 042
     Dates: start: 20180215, end: 20180215
  9. REGULAR INSULIN [Concomitant]
     Active Substance: INSULIN NOS
     Dosage: 6 U, UNK
     Route: 058
     Dates: start: 20171129, end: 20171203
  10. VENACALO-B6 [Concomitant]
     Active Substance: CALCIUM BROMIDE\DIPHENHYDRAMINE HYDROCHLORIDE\PYRIDOXINE HYDROCHLORIDE
     Dosage: 1 DF, UNK
     Route: 042
     Dates: start: 20180105, end: 20180105
  11. TASIGNA [Suspect]
     Active Substance: NILOTINIB
     Dosage: 300 MG, UNK
     Route: 048
     Dates: start: 20160629, end: 20160824
  12. TASIGNA [Suspect]
     Active Substance: NILOTINIB
     Dosage: 300 MG, UNK
     Route: 048
     Dates: start: 20160914, end: 20161011
  13. TASIGNA [Suspect]
     Active Substance: NILOTINIB
     Dosage: 150 MG, UNK
     Route: 048
     Dates: start: 20161109, end: 20170131
  14. GLUCOSE [Concomitant]
     Active Substance: DEXTROSE
     Dosage: 40 ML, UNK
     Route: 042
     Dates: start: 20171121, end: 20171121
  15. BENZBROMARONE [Concomitant]
     Active Substance: BENZBROMARONE
     Dosage: 100 MG, UNK
     Route: 048
     Dates: start: 20180205, end: 20180207
  16. HUMAN MONOSULIN [Concomitant]
     Active Substance: INSULIN HUMAN
     Indication: DIABETES MELLITUS
     Dosage: 6 U, UNK
     Route: 058
     Dates: start: 20180116, end: 20180116
  17. INSULIN ASPART [Concomitant]
     Active Substance: INSULIN ASPART
     Dosage: 8 U, UNK
     Route: 042
     Dates: start: 20171221, end: 20171224
  18. INSULIN ASPART [Concomitant]
     Active Substance: INSULIN ASPART
     Dosage: 4 U, UNK
     Route: 058
     Dates: start: 20180207, end: 20180213
  19. INSULIN REGULAR HM [Concomitant]
     Active Substance: INSULIN NOS
     Indication: DIABETES MELLITUS
     Dosage: 6 U, UNK
     Route: 058
     Dates: start: 20171213, end: 20171213
  20. MOSAPRIDE [Concomitant]
     Active Substance: MOSAPRIDE
     Indication: GASTROINTESTINAL DISORDER PROPHYLAXIS
     Dosage: 5 MG, UNK
     Route: 048
     Dates: start: 20180107, end: 20180127
  21. NOVOMIX [Concomitant]
     Active Substance: INSULIN ASPART
     Indication: DIABETES MELLITUS
     Dosage: 10 U, UNK
     Route: 058
     Dates: start: 20180105, end: 20180105
  22. NPH INSULIN [Concomitant]
     Active Substance: INSULIN BEEF
     Dosage: 26 U, UNK
     Route: 058
     Dates: start: 20180106, end: 20180106
  23. NPH INSULIN [Concomitant]
     Active Substance: INSULIN BEEF
     Dosage: 6 U, UNK
     Route: 058
     Dates: start: 20180110, end: 20180110
  24. NPH INSULIN [Concomitant]
     Active Substance: INSULIN BEEF
     Dosage: 4 U, UNK
     Route: 058
     Dates: start: 20180112, end: 20180112
  25. PANTOPRAZ [Concomitant]
     Indication: GASTROINTESTINAL DISORDER PROPHYLAXIS
     Dosage: 200 MG, UNK
     Route: 042
     Dates: start: 20180203, end: 20180206
  26. REGULAR INSULIN [Concomitant]
     Active Substance: INSULIN NOS
     Dosage: 6 U, UNK
     Route: 058
     Dates: start: 20180109, end: 20180111
  27. SENNOSIDE [Concomitant]
     Active Substance: SENNOSIDES
     Dosage: 2 DF, UNK
     Route: 048
     Dates: start: 20180111, end: 20180112
  28. SENNOSIDE [Concomitant]
     Active Substance: SENNOSIDES
     Dosage: 2 DF, UNK
     Route: 048
     Dates: start: 20180118, end: 20180204
  29. GLUCOSE [Concomitant]
     Active Substance: DEXTROSE
     Indication: DIABETES MELLITUS
     Dosage: 100 ML, UNK
     Route: 042
     Dates: start: 20171120, end: 20171120
  30. ACTRAPID [Concomitant]
     Active Substance: INSULIN HUMAN
     Indication: DIABETES MELLITUS
     Dosage: 2 U, UNK
     Route: 042
     Dates: start: 20180103, end: 20180103
  31. DEXAMETHASONE. [Concomitant]
     Active Substance: DEXAMETHASONE
     Indication: INFECTION PROPHYLAXIS
     Dosage: UNK
     Route: 061
     Dates: start: 20180203, end: 20180204
  32. FLEET ENEMA [Concomitant]
     Active Substance: SODIUM PHOSPHATE, DIBASIC\SODIUM PHOSPHATE, MONOBASIC
     Indication: GASTROINTESTINAL DISORDER PROPHYLAXIS
     Dosage: 118 ML, UNK
     Route: 054
     Dates: start: 20171212, end: 20171212
  33. GLUCOPHAGE [Concomitant]
     Active Substance: METFORMIN HYDROCHLORIDE
     Dosage: 500 MG, UNK
     Route: 048
     Dates: start: 20180204, end: 20180205
  34. HUMAN MONOSULIN [Concomitant]
     Active Substance: INSULIN HUMAN
     Dosage: 10 U, UNK
     Route: 058
     Dates: start: 20180126, end: 20180126
  35. INSULIN ASPART [Concomitant]
     Active Substance: INSULIN ASPART
     Dosage: 1 U, UNK
     Route: 058
     Dates: start: 20180106, end: 20180106
  36. LANSOPRAZOLE. [Concomitant]
     Active Substance: LANSOPRAZOLE
     Dosage: 30 MG, UNK
     Route: 048
     Dates: start: 20180212, end: 20180215
  37. MAG OXIDE [Concomitant]
     Active Substance: MAGNESIUM OXIDE
     Dosage: 250 MG, UNK
     Route: 048
     Dates: start: 20180201, end: 20180202
  38. NOVOMIX [Concomitant]
     Active Substance: INSULIN ASPART
     Dosage: 22 U, UNK
     Route: 058
     Dates: start: 20180109, end: 20180111
  39. NOVOMIX [Concomitant]
     Active Substance: INSULIN ASPART
     Dosage: 16 U, UNK
     Route: 058
     Dates: start: 20180114, end: 20180115
  40. NPH INSULIN [Concomitant]
     Active Substance: INSULIN BEEF
     Dosage: 14 U, UNK
     Route: 058
     Dates: start: 20180123, end: 20180123
  41. PANTOPRAZOLE [Concomitant]
     Active Substance: PANTOPRAZOLE
     Dosage: 80 MG, UNK
     Route: 042
     Dates: start: 20180203, end: 20180203
  42. REGULAR INSULIN [Concomitant]
     Active Substance: INSULIN NOS
     Dosage: 6 U, UNK
     Route: 042
     Dates: start: 20180103, end: 20180105
  43. SENNOSIDE [Concomitant]
     Active Substance: SENNOSIDES
     Dosage: 1 DF, UNK
     Route: 048
     Dates: start: 20180112, end: 20180118
  44. SODIUM BICARBONATE. [Concomitant]
     Active Substance: SODIUM BICARBONATE
     Indication: PROPHYLAXIS
     Dosage: 40 ML, UNK
     Route: 042
     Dates: start: 20171123, end: 20171123
  45. VENACALO-B6 [Concomitant]
     Active Substance: CALCIUM BROMIDE\DIPHENHYDRAMINE HYDROCHLORIDE\PYRIDOXINE HYDROCHLORIDE
     Dosage: 1 DF, UNK
     Route: 042
     Dates: start: 20180213, end: 20180213
  46. TASIGNA [Suspect]
     Active Substance: NILOTINIB
     Dosage: 150 MG, UNK
     Route: 048
     Dates: start: 20170201, end: 20170523
  47. TASIGNA [Suspect]
     Active Substance: NILOTINIB
     Dosage: 200 MG, UNK
     Route: 048
     Dates: start: 20170524, end: 20180206
  48. GLUCOSE [Concomitant]
     Active Substance: DEXTROSE
     Dosage: 80 ML, UNK
     Route: 042
     Dates: start: 20180302, end: 20180303
  49. ACETYLCYSTEINE. [Concomitant]
     Active Substance: ACETYLCYSTEINE
     Dosage: 200 MG, UNK
     Route: 048
     Dates: start: 20180204, end: 20180205
  50. ACTRAPID [Concomitant]
     Active Substance: INSULIN HUMAN
     Indication: DIABETES MELLITUS
     Dosage: 14 U, UNK
     Route: 058
     Dates: start: 20171125, end: 20171129
  51. BISACODYL. [Concomitant]
     Active Substance: BISACODYL
     Dosage: 5 MG, UNK
     Route: 048
     Dates: start: 20180204, end: 20180204
  52. COLCHICINE. [Concomitant]
     Active Substance: COLCHICINE
     Dosage: 0.5 MG, UNK
     Route: 048
     Dates: start: 20171201, end: 20171202
  53. COLCHICINE. [Concomitant]
     Active Substance: COLCHICINE
     Dosage: 0.5 MG, UNK
     Route: 048
     Dates: start: 20171219, end: 20180103
  54. DIMETHICONE. [Concomitant]
     Active Substance: DIMETHICONE
     Indication: GASTROINTESTINAL DISORDER PROPHYLAXIS
     Dosage: 40 MG, UNK
     Route: 048
     Dates: start: 20180103, end: 20180103
  55. GLUCOSAMIN [Concomitant]
     Active Substance: GLUCOSAMINE
     Indication: DIABETES MELLITUS
     Dosage: 500 MG, UNK
     Route: 048
     Dates: start: 20171222, end: 20180103
  56. INSULIN ASPART [Concomitant]
     Active Substance: INSULIN ASPART
     Dosage: 6 U, UNK
     Route: 042
     Dates: start: 20180216, end: 20180220
  57. NOLIDIN [Concomitant]
     Indication: GASTROINTESTINAL DISORDER PROPHYLAXIS
     Dosage: 1 DF, UNK
     Route: 048
     Dates: start: 20171230, end: 20180103
  58. NOVOMIX [Concomitant]
     Active Substance: INSULIN ASPART
     Dosage: 18 U, UNK
     Route: 058
     Dates: start: 20180106, end: 20180109
  59. NOVOMIX [Concomitant]
     Active Substance: INSULIN ASPART
     Dosage: 10 U, UNK
     Route: 058
     Dates: start: 20180124, end: 20180126
  60. PANTOPRAZOLE [Concomitant]
     Active Substance: PANTOPRAZOLE
     Indication: GASTROINTESTINAL DISORDER PROPHYLAXIS
     Dosage: 40 MG, UNK
     Route: 042
     Dates: start: 20171124, end: 20171124
  61. PHYTOMENADIONE [Concomitant]
     Active Substance: PHYTONADIONE
     Indication: PROPHYLAXIS
     Dosage: 10 MG, UNK
     Route: 042
     Dates: start: 20171224, end: 20171224
  62. SILYMARIN [Concomitant]
     Active Substance: DIETARY SUPPLEMENT\HERBALS\MILK THISTLE
     Dosage: 150 MG, UNK
     Route: 048
     Dates: start: 20180203, end: 20180204
  63. SILYMARIN [Concomitant]
     Active Substance: DIETARY SUPPLEMENT\HERBALS\MILK THISTLE
     Dosage: 150 MG, UNK
     Route: 048
     Dates: start: 20180205, end: 20180209
  64. TRANEXAMIC ACID. [Concomitant]
     Active Substance: TRANEXAMIC ACID
     Indication: PROPHYLAXIS
     Dosage: 250 MG, UNK
     Route: 042
     Dates: start: 20171212, end: 20171212
  65. VENACALO-B6 [Concomitant]
     Active Substance: CALCIUM BROMIDE\DIPHENHYDRAMINE HYDROCHLORIDE\PYRIDOXINE HYDROCHLORIDE
     Dosage: 1 DF, UNK
     Route: 042
     Dates: start: 20180107, end: 20180107
  66. VENACALO-B6 [Concomitant]
     Active Substance: CALCIUM BROMIDE\DIPHENHYDRAMINE HYDROCHLORIDE\PYRIDOXINE HYDROCHLORIDE
     Dosage: 1 DF, UNK
     Route: 042
     Dates: start: 20180124, end: 20180124
  67. VENACALO-B6 [Concomitant]
     Active Substance: CALCIUM BROMIDE\DIPHENHYDRAMINE HYDROCHLORIDE\PYRIDOXINE HYDROCHLORIDE
     Dosage: 1 DF, UNK
     Route: 042
     Dates: start: 20180215, end: 20180215
  68. TASIGNA [Suspect]
     Active Substance: NILOTINIB
     Dosage: 150 MG, UNK
     Route: 048
     Dates: start: 20160615, end: 20160628
  69. ACETYLCYSTEINE. [Concomitant]
     Active Substance: ACETYLCYSTEINE
     Indication: RESPIRATORY DISORDER PROPHYLAXIS
     Dosage: 600 MG, UNK
     Route: 048
     Dates: start: 20171209, end: 20171209
  70. ACETYLCYSTEINE. [Concomitant]
     Active Substance: ACETYLCYSTEINE
     Dosage: 200 MG, UNK
     Route: 048
     Dates: start: 20180204, end: 20180204
  71. ACETYLCYSTEINE. [Concomitant]
     Active Substance: ACETYLCYSTEINE
     Dosage: 200 MG, UNK
     Route: 048
     Dates: start: 20180205, end: 20180213
  72. BISACODYL. [Concomitant]
     Active Substance: BISACODYL
     Indication: GASTROINTESTINAL DISORDER PROPHYLAXIS
     Dosage: 10 MG, UNK
     Route: 054
     Dates: start: 20180111, end: 20180114
  73. DIOCTAHEDRAL SMECTITE [Concomitant]
     Dosage: 3 G, UNK
     Route: 048
     Dates: start: 20180210, end: 20180213
  74. ESOMEPRAZOLE. [Concomitant]
     Active Substance: ESOMEPRAZOLE MAGNESIUM
     Indication: GASTROINTESTINAL DISORDER PROPHYLAXIS
     Dosage: 40 MG, UNK
     Route: 048
     Dates: start: 20171214, end: 20171215
  75. ISOPHANE INSULIN [Concomitant]
     Active Substance: INSULIN NOS
     Indication: DIABETES MELLITUS
     Dosage: 16 U, UNK
     Route: 058
     Dates: start: 20180307, end: 20180307
  76. INSULIN ASPART [Concomitant]
     Active Substance: INSULIN ASPART
     Dosage: 8 U, UNK
     Route: 042
     Dates: start: 20171224, end: 20171228
  77. INSULIN ASPART [Concomitant]
     Active Substance: INSULIN ASPART
     Dosage: 4 U, UNK
     Route: 058
     Dates: start: 20180118, end: 20180119
  78. MYCOMB [Concomitant]
     Indication: INFECTION PROPHYLAXIS
     Dosage: UNK
     Route: 061
     Dates: start: 20180223
  79. NOVOMIX [Concomitant]
     Active Substance: INSULIN ASPART
     Dosage: 18 U, UNK
     Route: 058
     Dates: start: 20180114, end: 20180114
  80. REGULAR INSULIN [Concomitant]
     Active Substance: INSULIN NOS
     Dosage: 8 U, UNK
     Route: 058
     Dates: start: 20171129, end: 20171203
  81. REGULAR INSULIN [Concomitant]
     Active Substance: INSULIN NOS
     Dosage: 10 U, UNK
     Route: 058
     Dates: start: 20171129, end: 20171203
  82. REGULAR INSULIN [Concomitant]
     Active Substance: INSULIN NOS
     Dosage: 6 U, UNK
     Route: 058
     Dates: start: 20171203, end: 20171207
  83. SILYMARIN [Concomitant]
     Active Substance: DIETARY SUPPLEMENT\HERBALS\MILK THISTLE
     Indication: HEPATIC STEATOSIS
     Dosage: 150 MG, UNK
     Route: 048
     Dates: start: 20180124, end: 20180203
  84. VENACALO-B6 [Concomitant]
     Active Substance: CALCIUM BROMIDE\DIPHENHYDRAMINE HYDROCHLORIDE\PYRIDOXINE HYDROCHLORIDE
     Indication: PROPHYLAXIS
     Dosage: 1 DF, UNK
     Route: 042
     Dates: start: 20171214, end: 20171215
  85. VENACALO-B6 [Concomitant]
     Active Substance: CALCIUM BROMIDE\DIPHENHYDRAMINE HYDROCHLORIDE\PYRIDOXINE HYDROCHLORIDE
     Dosage: 1 DF, UNK
     Route: 042
     Dates: start: 20180203, end: 20180204
  86. GLUCOSE [Concomitant]
     Active Substance: DEXTROSE
     Dosage: 20 ML, UNK
     Route: 042
     Dates: start: 20180130, end: 20180130
  87. ACETYLCYSTEINE. [Concomitant]
     Active Substance: ACETYLCYSTEINE
     Dosage: 200 MG, UNK
     Route: 048
     Dates: start: 20180213, end: 20180217
  88. AMLODIPINE [Concomitant]
     Active Substance: AMLODIPINE BESYLATE
     Indication: HYPERTENSION
     Dosage: 200 MG, UNK
     Route: 048
     Dates: start: 20171117, end: 20171117
  89. BISOPROLOL [Concomitant]
     Active Substance: BISOPROLOL
     Dosage: 1.25 MG, UNK
     Route: 048
     Dates: start: 20171206, end: 20171206
  90. DIOCTAHEDRAL SMECTITE [Concomitant]
     Indication: RESPIRATORY DISORDER PROPHYLAXIS
     Dosage: 3 G, UNK
     Route: 048
     Dates: start: 20180209, end: 20180210
  91. GLUCOPHAGE [Concomitant]
     Active Substance: METFORMIN HYDROCHLORIDE
     Indication: GOUT
     Dosage: 500 MG, UNK
     Route: 048
     Dates: start: 20180110, end: 20180126
  92. INSULIN ASPART [Concomitant]
     Active Substance: INSULIN ASPART
     Indication: DIABETES MELLITUS
     Dosage: 6 U, UNK
     Route: 042
     Dates: start: 20171220, end: 20171221
  93. NOVOMIX [Concomitant]
     Active Substance: INSULIN ASPART
     Dosage: 14 U, UNK
     Route: 058
     Dates: start: 20180106, end: 20180106
  94. NPH INSULIN [Concomitant]
     Active Substance: INSULIN BEEF
     Dosage: 6 U, UNK
     Route: 058
     Dates: start: 20180117, end: 20180117
  95. SENNOSIDE [Concomitant]
     Active Substance: SENNOSIDES
     Dosage: 2 DF, UNK
     Route: 048
     Dates: start: 20180204, end: 20180204
  96. SILYMARIN [Concomitant]
     Active Substance: DIETARY SUPPLEMENT\HERBALS\MILK THISTLE
     Dosage: 150 MG, UNK
     Route: 048
     Dates: start: 20180206, end: 20180207
  97. VENACALO-B6 [Concomitant]
     Active Substance: CALCIUM BROMIDE\DIPHENHYDRAMINE HYDROCHLORIDE\PYRIDOXINE HYDROCHLORIDE
     Dosage: 1 DF, UNK
     Route: 042
     Dates: start: 20180113, end: 20180113
  98. BISOPROLOL [Concomitant]
     Active Substance: BISOPROLOL
     Indication: HYPERTENSION
     Dosage: 1.25 MG, UNK
     Route: 048
     Dates: start: 20171124, end: 20171124
  99. COLCHICINE. [Concomitant]
     Active Substance: COLCHICINE
     Indication: GOUT
     Dosage: 0.5 MG, UNK
     Route: 048
     Dates: start: 20171116, end: 20171122
  100. GLUCOPHAGE [Concomitant]
     Active Substance: METFORMIN HYDROCHLORIDE
     Dosage: 500 MG, UNK
     Route: 048
     Dates: start: 20180205, end: 20180215
  101. MAG OXIDE [Concomitant]
     Active Substance: MAGNESIUM OXIDE
     Dosage: 250 MG, UNK
     Route: 048
     Dates: start: 20180110, end: 20180114
  102. MOSAPRIDE [Concomitant]
     Active Substance: MOSAPRIDE
     Dosage: 5 MG, UNK
     Route: 048
     Dates: start: 20180213, end: 20180213
  103. NOVOMIX [Concomitant]
     Active Substance: INSULIN ASPART
     Dosage: 18 U, UNK
     Route: 058
     Dates: start: 20180111, end: 20180112
  104. NOVOMIX [Concomitant]
     Active Substance: INSULIN ASPART
     Dosage: 8 U, UNK
     Route: 058
     Dates: start: 20180126, end: 20180128
  105. NPH INSULIN [Concomitant]
     Active Substance: INSULIN BEEF
     Dosage: 6 U, UNK
     Route: 058
     Dates: start: 20180107, end: 20180107
  106. NPH INSULIN [Concomitant]
     Active Substance: INSULIN BEEF
     Dosage: 6 U, UNK
     Route: 058
     Dates: start: 20180109, end: 20180109
  107. REGULAR INSULIN [Concomitant]
     Active Substance: INSULIN NOS
     Indication: DIABETES MELLITUS
     Dosage: 4 U, UNK
     Route: 058
     Dates: start: 20171126, end: 20171130
  108. SENNOSIDE [Concomitant]
     Active Substance: SENNOSIDES
     Dosage: 2 DF, UNK
     Route: 048
     Dates: start: 20180204, end: 20180205
  109. SILYMARIN [Concomitant]
     Active Substance: DIETARY SUPPLEMENT\HERBALS\MILK THISTLE
     Dosage: 150 MG, UNK
     Route: 048
     Dates: start: 20180204, end: 20180204
  110. SILYMARIN [Concomitant]
     Active Substance: DIETARY SUPPLEMENT\HERBALS\MILK THISTLE
     Dosage: 150 MG, UNK
     Route: 048
     Dates: start: 20180204, end: 20180205
  111. SILYMARIN [Concomitant]
     Active Substance: DIETARY SUPPLEMENT\HERBALS\MILK THISTLE
     Dosage: 150 MG, UNK
     Route: 048
     Dates: start: 20180216, end: 20180307
  112. VENACALO-B6 [Concomitant]
     Active Substance: CALCIUM BROMIDE\DIPHENHYDRAMINE HYDROCHLORIDE\PYRIDOXINE HYDROCHLORIDE
     Dosage: 1 DF, UNK
     Route: 042
     Dates: start: 20180114, end: 20180119
  113. TASIGNA [Suspect]
     Active Substance: NILOTINIB
     Indication: CHRONIC MYELOID LEUKAEMIA
     Dosage: 600 MG, UNK
     Route: 048
     Dates: start: 20160330, end: 20160601
  114. TASIGNA [Suspect]
     Active Substance: NILOTINIB
     Dosage: 150 MG, UNK
     Route: 048
     Dates: start: 20161012, end: 20161108
  115. GLUCOSE [Concomitant]
     Active Substance: DEXTROSE
     Dosage: 40 ML, UNK
     Route: 042
     Dates: start: 20180309, end: 20180309
  116. ACETYLCYSTEINE. [Concomitant]
     Active Substance: ACETYLCYSTEINE
     Dosage: 600 MG, UNK
     Route: 048
     Dates: start: 20171209, end: 20180103
  117. ACETYLCYSTEINE. [Concomitant]
     Active Substance: ACETYLCYSTEINE
     Dosage: 200 MG, UNK
     Route: 048
     Dates: start: 20180121, end: 20180204
  118. BENZBROMARONE [Concomitant]
     Active Substance: BENZBROMARONE
     Indication: GOUT
     Dosage: 100 MG, UNK
     Route: 048
     Dates: start: 20180130, end: 20180204
  119. BENZBROMARONE [Concomitant]
     Active Substance: BENZBROMARONE
     Dosage: 100 MG, UNK
     Route: 048
     Dates: start: 20180204, end: 20180204
  120. DIMETHICONE. [Concomitant]
     Active Substance: DIMETHICONE
     Dosage: 40 MG, UNK
     Route: 048
     Dates: start: 20180107, end: 20180121
  121. DIOCTAHEDRAL SMECTITE [Concomitant]
     Dosage: 3 G, UNK
     Route: 048
     Dates: start: 20180213, end: 20180219
  122. FUROSEMIDE. [Concomitant]
     Active Substance: FUROSEMIDE
     Indication: HYPERTENSION
     Dosage: 40 MG, UNK
     Route: 048
     Dates: start: 20171128, end: 20171128
  123. GLUCOPHAGE [Concomitant]
     Active Substance: METFORMIN HYDROCHLORIDE
     Dosage: 500 MG, UNK
     Route: 048
     Dates: start: 20180126, end: 20180128
  124. LANSOPRAZOLE. [Concomitant]
     Active Substance: LANSOPRAZOLE
     Indication: GASTROINTESTINAL DISORDER PROPHYLAXIS
     Dosage: 30 MG, UNK
     Route: 048
     Dates: start: 20180206, end: 20180207
  125. MAG OXIDE [Concomitant]
     Active Substance: MAGNESIUM OXIDE
     Indication: GASTROINTESTINAL DISORDER PROPHYLAXIS
     Dosage: 250 MG, UNK
     Route: 048
     Dates: start: 20171115, end: 20171116
  126. NOVOMIX [Concomitant]
     Active Substance: INSULIN ASPART
     Dosage: 20 U, UNK
     Route: 058
     Dates: start: 20180112, end: 20180114
  127. NOVOMIX [Concomitant]
     Active Substance: INSULIN ASPART
     Dosage: 18 U, UNK
     Route: 058
     Dates: start: 20180118, end: 20180119
  128. NOVOMIX [Concomitant]
     Active Substance: INSULIN ASPART
     Dosage: 14 U, UNK
     Route: 058
     Dates: start: 20180119, end: 20180123
  129. NPH INSULIN [Concomitant]
     Active Substance: INSULIN BEEF
     Indication: DIABETES MELLITUS
     Dosage: 4 U, UNK
     Route: 058
     Dates: start: 20180103, end: 20180103
  130. NPH INSULIN [Concomitant]
     Active Substance: INSULIN BEEF
     Dosage: 12 U, UNK
     Route: 058
     Dates: start: 20180105, end: 20180105
  131. NPH INSULIN [Concomitant]
     Active Substance: INSULIN BEEF
     Dosage: 14 U, UNK
     Route: 058
     Dates: start: 20180119, end: 20180119
  132. REGULAR INSULIN [Concomitant]
     Active Substance: INSULIN NOS
     Dosage: 4 U, UNK
     Route: 042
     Dates: start: 20180215, end: 20180216
  133. SENNOSIDE [Concomitant]
     Active Substance: SENNOSIDES
     Indication: GASTROINTESTINAL DISORDER PROPHYLAXIS
     Dosage: 1 DF, UNK
     Route: 048
     Dates: start: 20180110, end: 20180111
  134. ULCERIN [Concomitant]
     Indication: GASTROINTESTINAL DISORDER PROPHYLAXIS
     Dosage: 1 DF, UNK
     Route: 048
     Dates: start: 20171113, end: 20171122

REACTIONS (5)
  - Hyperkalaemia [Not Recovered/Not Resolved]
  - Hypokalaemia [Not Recovered/Not Resolved]
  - Anaemia [Not Recovered/Not Resolved]
  - Thrombocytopenia [Not Recovered/Not Resolved]
  - Fatigue [Not Recovered/Not Resolved]

NARRATIVE: CASE EVENT DATE: 20160601
